FAERS Safety Report 24886105 (Version 3)
Quarter: 2025Q1

REPORT INFORMATION
  Report Type: Spontaneous
  Country: US (occurrence: US)
  Receive Date: 20250125
  Receipt Date: 20250318
  Transmission Date: 20250409
  Serious: Yes (Death, Hospitalization)
  Sender: JOHNSON AND JOHNSON
  Company Number: US-JNJFOC-20250157727

PATIENT
  Sex: Female

DRUGS (1)
  1. OPSUMIT [Suspect]
     Active Substance: MACITENTAN
     Indication: Product used for unknown indication
     Route: 048

REACTIONS (3)
  - Death [Fatal]
  - Pulmonary hypertension [Unknown]
  - Gait inability [Unknown]
